FAERS Safety Report 5750461-0 (Version None)
Quarter: 2008Q2

REPORT INFORMATION
  Report Type: 
  Country: None (occurrence: None)
  Receive Date: 20080528
  Receipt Date: 20071204
  Transmission Date: 20081010
  Serious: No
  Sender: FDA-Public Use
  Company Number: US-KINGPHARMUSA00001-K200701568

PATIENT

DRUGS (3)
  1. AVINZA [Suspect]
     Indication: PAIN
     Dosage: 90 MG, QD
     Route: 048
  2. AVINZA [Suspect]
     Dosage: 60 MG, QD
     Route: 048
  3. MILK MAGNESIA [Concomitant]
     Indication: CONSTIPATION
     Dosage: UNK, PRN
     Route: 048

REACTIONS (5)
  - DRUG DIVERSION [None]
  - DRUG INEFFECTIVE [None]
  - HYPERHIDROSIS [None]
  - PAIN [None]
  - WITHDRAWAL SYNDROME [None]
